FAERS Safety Report 4769484-3 (Version None)
Quarter: 2005Q3

REPORT INFORMATION
  Report Type: 
  Country: None (occurrence: None)
  Receive Date: 20050915
  Receipt Date: 20040915
  Transmission Date: 20060218
  Serious: No
  Sender: FDA-Public Use
  Company Number: US-GLAXOSMITHKLINE-A0525849A

PATIENT
  Age: 45 Year
  Sex: Male

DRUGS (1)
  1. ABREVA [Suspect]

REACTIONS (4)
  - CHEILITIS [None]
  - HERPES SIMPLEX [None]
  - LIP DISORDER [None]
  - LIP DRY [None]
